FAERS Safety Report 6279947-X (Version None)
Quarter: 2009Q3

REPORT INFORMATION
  Report Type: 
  Country: None (occurrence: None)
  Receive Date: 20090723
  Receipt Date: 20090713
  Transmission Date: 20100115
  Serious: Yes (Hospitalization)
  Sender: FDA-Public Use
  Company Number: US-SANOFI-SYNTHELABO-F01200900657

PATIENT
  Sex: Female

DRUGS (4)
  1. METOPROLOL SUCCINATE [Concomitant]
  2. OXALIPLATIN [Suspect]
     Indication: COLON CANCER
     Dosage: 130 MG/M2
     Route: 042
     Dates: start: 20090507, end: 20090507
  3. BEVACIZUMAB [Suspect]
     Dates: start: 20081106, end: 20090509
  4. CAPECITABINE [Suspect]
     Route: 048
     Dates: start: 20081106, end: 20090610

REACTIONS (1)
  - FALL [None]
